FAERS Safety Report 5808572-7 (Version None)
Quarter: 2008Q3

REPORT INFORMATION
  Report Type: 
  Country: None (occurrence: None)
  Receive Date: 20080714
  Receipt Date: 20080708
  Transmission Date: 20090109
  Serious: Yes (Other)
  Sender: FDA-Public Use
  Company Number: US-ASTRAZENECA-2008UW13636

PATIENT
  Age: 73 Year
  Sex: Male
  Weight: 84.4 kg

DRUGS (2)
  1. CRESTOR [Suspect]
     Indication: BLOOD CHOLESTEROL INCREASED
     Route: 048
     Dates: end: 20080615
  2. ADVAIR DISKUS 100/50 [Concomitant]
     Dosage: 250/10

REACTIONS (6)
  - ASTHENIA [None]
  - JOINT SWELLING [None]
  - MUSCLE SPASMS [None]
  - MYALGIA [None]
  - PAIN [None]
  - WALKING AID USER [None]
